FAERS Safety Report 20089089 (Version 1)
Quarter: 2021Q4

REPORT INFORMATION
  Report Type: Spontaneous
  Country: US (occurrence: US)
  Receive Date: 20211119
  Receipt Date: 20211119
  Transmission Date: 20220303
  Serious: No
  Sender: FDA-Public Use
  Company Number: US-ONCOPEPPR-00873

PATIENT
  Age: 59 Year
  Sex: Female

DRUGS (1)
  1. PEPAXTO [Suspect]
     Active Substance: MELPHALAN FLUFENAMIDE
     Indication: Plasma cell myeloma
     Route: 042
     Dates: end: 20210728

REACTIONS (1)
  - Disease progression [Unknown]
